FAERS Safety Report 4875255-X (Version None)
Quarter: 2006Q1

REPORT INFORMATION
  Report Type: 
  Country: None (occurrence: None)
  Receive Date: 20060109
  Receipt Date: 20051004
  Transmission Date: 20060701
  Serious: Yes (Hospitalization, Other)
  Sender: FDA-Public Use
  Company Number: US-MERCK-0510USA02684

PATIENT
  Age: 63 Year
  Sex: Male
  Weight: 93 kg

DRUGS (3)
  1. VIOXX [Suspect]
     Indication: PAIN MANAGEMENT
     Route: 048
     Dates: start: 19991016, end: 20031017
  2. VIOXX [Suspect]
     Indication: ARTHRITIS
     Route: 048
     Dates: start: 19991016, end: 20031017
  3. ASPIRIN [Concomitant]
     Route: 065

REACTIONS (6)
  - ANAEMIA [None]
  - ARTERIAL OCCLUSIVE DISEASE [None]
  - BACK INJURY [None]
  - CARDIAC FAILURE CONGESTIVE [None]
  - DIZZINESS [None]
  - MYOCARDIAL INFARCTION [None]
